FAERS Safety Report 9037149 (Version 1)
Quarter: 2013Q1

REPORT INFORMATION
  Report Type: Spontaneous
  Country: US (occurrence: None)
  Receive Date: 20130115
  Receipt Date: 20130115
  Transmission Date: 20140127
  Serious: Yes (Other)
  Sender: FDA-Public Use
  Company Number: TPA2012A01946

PATIENT
  Sex: Male

DRUGS (6)
  1. ACTOS (PIOGLITAZONE HYDROCHLORIDE) [Suspect]
     Indication: TYPE 2 DIABETES MELLITUS
     Dates: start: 20060412, end: 20080622
  2. METFORMIN (METFORMIN) [Concomitant]
  3. STARLIX (NATEGLINIDE) TABLET [Concomitant]
  4. LISPRO (HUMALOG) (INSULIN LISPRO) [Concomitant]
  5. GLARGINE/LANTUS (INSULIN GLARGINE) [Concomitant]
  6. JANUVIA (SITAGLIPTIN PHOSPHATE) [Concomitant]

REACTIONS (8)
  - Injury [None]
  - Myocardial infarction [None]
  - Cerebrovascular accident [None]
  - Prostate infection [None]
  - Blood urine present [None]
  - Kidney infection [None]
  - Urinary tract infection [None]
  - Local swelling [None]
